FAERS Safety Report 6603887-7 (Version None)
Quarter: 2010Q1

REPORT INFORMATION
  Report Type: 
  Country: None (occurrence: None)
  Receive Date: 20100226
  Receipt Date: 20090306
  Transmission Date: 20100710
  Serious: No
  Sender: FDA-Public Use
  Company Number: A0772083A

PATIENT
  Age: 34 Year
  Sex: Female

DRUGS (6)
  1. LAMICTAL CD [Suspect]
     Indication: BIPOLAR DISORDER
     Dosage: 200MG PER DAY
     Route: 048
     Dates: start: 20090101
  2. LITHIUM [Concomitant]
  3. ABILIFY [Concomitant]
  4. SEROQUEL [Concomitant]
  5. NEXIUM [Concomitant]
  6. SYNTHROID [Concomitant]

REACTIONS (3)
  - RASH [None]
  - RASH PAPULAR [None]
  - RASH PUSTULAR [None]
